FAERS Safety Report 8537976 (Version 2)
Quarter: 2012Q4

REPORT INFORMATION
  Report Type: 
  Country: BR (occurrence: BR)
  Receive Date: 20120501
  Receipt Date: 20121019
  Transmission Date: 20130627
  Serious: Yes (Death, Other)
  Sender: FDA-Public Use
  Company Number: BR-ASTRAZENECA-2012SE26979

PATIENT
  Age: 81 Year
  Sex: Male

DRUGS (2)
  1. ATACAND [Suspect]
     Indication: CARDIAC DISORDER
     Route: 048
     Dates: start: 2009
  2. SELOZOK [Suspect]
     Indication: CARDIAC DISORDER
     Route: 048

REACTIONS (7)
  - Myocardial infarction [Fatal]
  - Plasma cell myeloma [Not Recovered/Not Resolved]
  - Multi-organ failure [Not Recovered/Not Resolved]
  - Venous occlusion [Not Recovered/Not Resolved]
  - Dyspnoea [Unknown]
  - Fatigue [Unknown]
  - Cough [Unknown]
